FAERS Safety Report 6767981-2 (Version None)
Quarter: 2010Q2

REPORT INFORMATION
  Report Type: 
  Country: None (occurrence: None)
  Receive Date: 20100614
  Receipt Date: 20100603
  Transmission Date: 20101027
  Serious: Yes (Other)
  Sender: FDA-Public Use
  Company Number: A0862738A

PATIENT
  Sex: Female

DRUGS (7)
  1. LAMICTAL [Suspect]
     Indication: EPILEPSY
     Route: 048
     Dates: start: 20000601
  2. LAMOTRIGINE [Suspect]
     Indication: EPILEPSY
     Dosage: 400MG TWICE PER DAY
     Route: 048
     Dates: start: 20090301, end: 20090301
  3. VALPROIC ACID [Suspect]
     Route: 065
  4. KEPPRA [Concomitant]
  5. OMEPRAZOLE [Concomitant]
  6. MULTI-VITAMIN [Concomitant]
  7. TYLENOL [Concomitant]

REACTIONS (8)
  - ABNORMAL SENSATION IN EYE [None]
  - CONDITION AGGRAVATED [None]
  - CONVULSION [None]
  - DIZZINESS [None]
  - EYE PAIN [None]
  - NAUSEA [None]
  - PHOTOPSIA [None]
  - VOMITING [None]
